FAERS Safety Report 6419829-3 (Version None)
Quarter: 2009Q4

REPORT INFORMATION
  Report Type: 
  Country: None (occurrence: None)
  Receive Date: 20091029
  Receipt Date: 20091023
  Transmission Date: 20100525
  Serious: Yes (Death)
  Sender: FDA-Public Use
  Company Number: US-CELGENEUS-163-21880-09101959

PATIENT

DRUGS (1)
  1. REVLIMID [Suspect]
     Indication: MYOCARDIAL INFARCTION
     Route: 048

REACTIONS (1)
  - MYOCARDIAL INFARCTION [None]
